FAERS Safety Report 7342767-9 (Version None)
Quarter: 2011Q1

REPORT INFORMATION
  Report Type: 
  Country: None (occurrence: None)
  Receive Date: 20110310
  Receipt Date: 20110303
  Transmission Date: 20110831
  Serious: Yes (Other)
  Sender: FDA-Public Use
  Company Number: TR-BAYER-2011-019786

PATIENT
  Age: 33 Year
  Sex: Female
  Weight: 70 kg

DRUGS (2)
  1. YASMIN [Suspect]
     Indication: ENDOMETRIOSIS
     Dosage: UNK
     Route: 048
     Dates: start: 20100301, end: 20101101
  2. VAXIGRIP [Suspect]
     Indication: ANTIVIRAL PROPHYLAXIS
     Dosage: UNK
     Route: 042
     Dates: start: 20100901

REACTIONS (4)
  - PARAESTHESIA [None]
  - ASTHENIA [None]
  - PAIN [None]
  - UNEVALUABLE EVENT [None]
